FAERS Safety Report 23745930 (Version 1)
Quarter: 2024Q2

REPORT INFORMATION
  Report Type: Spontaneous
  Country: US (occurrence: US)
  Receive Date: 20240416
  Receipt Date: 20240416
  Transmission Date: 20240716
  Serious: Yes (Other)
  Sender: FDA-Public Use
  Company Number: US-GSKCCFUS-Case-01138963_AE-66986

PATIENT

DRUGS (1)
  1. NUCALA [Suspect]
     Active Substance: MEPOLIZUMAB
     Indication: Eosinophilic granulomatosis with polyangiitis
     Dosage: 300 MG, Q4W
     Dates: start: 2020

REACTIONS (8)
  - Pneumonia [Not Recovered/Not Resolved]
  - Bronchitis [Recovering/Resolving]
  - Injection site pain [Unknown]
  - Injection site bruising [Recovered/Resolved]
  - Injection site haemorrhage [Unknown]
  - Lung opacity [Unknown]
  - Wrong technique in device usage process [Unknown]
  - Drug ineffective [Unknown]

NARRATIVE: CASE EVENT DATE: 20231101
